FAERS Safety Report 24258721 (Version 1)
Quarter: 2024Q3

REPORT INFORMATION
  Report Type: Spontaneous
  Country: US (occurrence: US)
  Receive Date: 20240828
  Receipt Date: 20240828
  Transmission Date: 20241016
  Serious: Yes (Other)
  Sender: PFIZER
  Company Number: US-PFIZER INC-202400243696

PATIENT
  Age: 75 Year
  Sex: Female
  Weight: 48.76 kg

DRUGS (4)
  1. IBRANCE [Suspect]
     Active Substance: PALBOCICLIB
     Indication: Breast cancer metastatic
     Dosage: 75MG, ORALLY, EVERY DAY FOR 3 WEEKS AND THEN 1 WEEK OFF
     Route: 048
     Dates: start: 202211, end: 20240808
  2. FULVESTRANT [Concomitant]
     Active Substance: FULVESTRANT
     Dosage: ONCE A MONTH
     Dates: start: 202211, end: 20240808
  3. LEVOTHYROXINE [Concomitant]
     Active Substance: LEVOTHYROXINE\LEVOTHYROXINE SODIUM
     Indication: Hypothyroidism
     Dosage: 40 UG, 1X/DAY
     Route: 048
     Dates: start: 1996
  4. XGEVA [Concomitant]
     Active Substance: DENOSUMAB
     Indication: Osteoporosis
     Dosage: ONCE EVERY 6 MONTHS, 120MG
     Dates: start: 201808

REACTIONS (2)
  - Neutropenia [Unknown]
  - Neoplasm progression [Unknown]
